FAERS Safety Report 4628028-7 (Version None)
Quarter: 2005Q1

REPORT INFORMATION
  Report Type: 
  Country: None (occurrence: None)
  Receive Date: 20050329
  Receipt Date: 20050314
  Transmission Date: 20050727
  Serious: No
  Sender: FDA-Public Use
  Company Number: CART-10063

PATIENT
  Age: 34 Year
  Sex: Female
  Weight: 61.6892 kg

DRUGS (1)
  1. CARTICEL [Suspect]
     Indication: KNEE DEFORMITY
     Dosage: 1 NA ONCE IS
     Route: 035
     Dates: start: 20010831, end: 20010831

REACTIONS (3)
  - CHONDROMALACIA [None]
  - GRAFT OVERGROWTH [None]
  - MUSCLE ATROPHY [None]
